FAERS Safety Report 5583139-7 (Version None)
Quarter: 2008Q1

REPORT INFORMATION
  Report Type: 
  Country: None (occurrence: None)
  Receive Date: 20080103
  Receipt Date: 20080103
  Transmission Date: 20080703
  Serious: Yes (Hospitalization)
  Sender: FDA-Public Use
  Company Number: None

PATIENT
  Age: 68 Year
  Sex: Female

DRUGS (2)
  1. PHENTERMINE [Suspect]
     Indication: WEIGHT CONTROL
     Dosage: PO (TAKEN IN PAST)
     Route: 048
  2. FENFLURAMINE [Suspect]
     Indication: WEIGHT CONTROL
     Dosage: PO   (TAKEN IN PAST)
     Route: 048

REACTIONS (3)
  - FLUID OVERLOAD [None]
  - MITRAL VALVE INCOMPETENCE [None]
  - MITRAL VALVE PROLAPSE [None]
